APPROVED DRUG PRODUCT: WESTADONE
Active Ingredient: METHADONE HYDROCHLORIDE
Strength: 2.5MG
Dosage Form/Route: TABLET, DISPERSIBLE;ORAL
Application: N017108 | Product #001
Applicant: SANDOZ INC
Approved: Approved Prior to Jan 1, 1982 | RLD: No | RS: No | Type: DISCN